FAERS Safety Report 7203647-2 (Version None)
Quarter: 2010Q4

REPORT INFORMATION
  Report Type: 
  Country: None (occurrence: None)
  Receive Date: 20101230
  Receipt Date: 20101228
  Transmission Date: 20110411
  Serious: Yes (Hospitalization, Disabling)
  Sender: FDA-Public Use
  Company Number: FR-SANOFI-AVENTIS-2010SA078187

PATIENT
  Age: 60 Year
  Sex: Male
  Weight: 90 kg

DRUGS (14)
  1. AMAREL [Suspect]
     Route: 048
     Dates: start: 20101030, end: 20101030
  2. AMAREL [Suspect]
     Route: 048
     Dates: end: 20101029
  3. DEPAKENE [Suspect]
     Route: 048
     Dates: start: 20101030, end: 20101030
  4. DEPAKENE [Suspect]
     Route: 048
     Dates: end: 20101029
  5. COTAREG ^NOVARTIS^ [Suspect]
     Route: 048
     Dates: start: 20101030, end: 20101030
  6. COTAREG ^NOVARTIS^ [Suspect]
     Route: 048
     Dates: end: 20101029
  7. JANUVIA [Suspect]
     Route: 048
     Dates: start: 20101030, end: 20101030
  8. JANUVIA [Suspect]
     Route: 048
     Dates: end: 20101029
  9. GLUCOPHAGE [Suspect]
     Route: 048
     Dates: start: 20101030, end: 20101030
  10. GLUCOPHAGE [Suspect]
     Route: 048
     Dates: end: 20101029
  11. RIVOTRIL [Suspect]
     Route: 048
     Dates: start: 20101030, end: 20101030
  12. RIVOTRIL [Suspect]
     Route: 048
     Dates: end: 20101029
  13. ZOLPIDEM [Concomitant]
  14. VOLTAREN [Concomitant]
     Route: 048

REACTIONS (4)
  - DEPRESSED LEVEL OF CONSCIOUSNESS [None]
  - GENERALISED OEDEMA [None]
  - HYPOGLYCAEMIA [None]
  - RENAL FAILURE ACUTE [None]
